FAERS Safety Report 9247846 (Version 1)
Quarter: 2013Q1

REPORT INFORMATION
  Report Type: Spontaneous
  Country: US (occurrence: None)
  Receive Date: 20130305
  Receipt Date: 20130305
  Transmission Date: 20140127
  Serious: Yes (Other)
  Sender: FDA-Public Use
  Company Number: 163-21880-12092203

PATIENT
  Age: 64 Year
  Sex: Female
  Weight: 68.04 kg

DRUGS (7)
  1. REVLIMID [Suspect]
     Indication: MYELODYSPLASTIC SYNDROME
     Dosage: 10 MG, 5 DAYS PER WEEK, PO
     Route: 048
     Dates: start: 20100410
  2. LEVOTHYROXINE (LEVOTHYROXINE) [Suspect]
  3. ERGOCALCIFEROL [Suspect]
  4. IBUPROFEN (IBUPROFEN) [Suspect]
  5. ASPIRIN (ACETYLSALICYLIC ACID) [Suspect]
  6. CYANOCOBALAMIN [Suspect]
  7. DIAZEPAM (DIAZEPAM) [Suspect]

REACTIONS (4)
  - Diarrhoea [None]
  - White blood cell count decreased [None]
  - Neutrophil count decreased [None]
  - Red blood cell count decreased [None]
